FAERS Safety Report 4739572-6 (Version None)
Quarter: 2005Q3

REPORT INFORMATION
  Report Type: 
  Country: None (occurrence: None)
  Receive Date: 20050810
  Receipt Date: 20050405
  Transmission Date: 20060218
  Serious: No
  Sender: FDA-Public Use
  Company Number: US-GLAXOSMITHKLINE-A0552797A

PATIENT
  Sex: Male

DRUGS (5)
  1. PAXIL [Suspect]
     Dosage: 20MG PER DAY
     Route: 048
     Dates: start: 20030801
  2. ASPIRIN [Concomitant]
  3. HYZAAR [Concomitant]
  4. TOPROL-XL [Concomitant]
  5. ZOCOR [Concomitant]

REACTIONS (2)
  - ANXIETY [None]
  - FATIGUE [None]
